FAERS Safety Report 17415210 (Version 7)
Quarter: 2022Q1

REPORT INFORMATION
  Report Type: Spontaneous
  Country: US (occurrence: US)
  Receive Date: 20200213
  Receipt Date: 20220318
  Transmission Date: 20220424
  Serious: Yes (Disabling)
  Sender: FDA-Public Use
  Company Number: US-PFIZER INC-2018496563

PATIENT
  Age: 58 Year
  Sex: Female
  Weight: 68 kg

DRUGS (5)
  1. PRISTIQ EXTENDED-RELEASE [Suspect]
     Active Substance: DESVENLAFAXINE SUCCINATE
     Indication: Depression
     Dosage: 75 MG, UNK
     Dates: start: 201609
  2. PRISTIQ EXTENDED-RELEASE [Suspect]
     Active Substance: DESVENLAFAXINE SUCCINATE
     Dosage: 0.5 DF, UNK (SPLITTING ONE OF THE 25MG OR ONE OF THE 50 MG PILLS)
     Dates: start: 201807, end: 2018
  3. PRISTIQ EXTENDED-RELEASE [Suspect]
     Active Substance: DESVENLAFAXINE SUCCINATE
     Dosage: 0.5 DF, (CUTTING THE 25 MG IN HALF; DID THAT FOR A MONTH)
     Dates: start: 201808, end: 201809
  4. PRISTIQ EXTENDED-RELEASE [Suspect]
     Active Substance: DESVENLAFAXINE SUCCINATE
     Dosage: 100 MG, 1X/DAY (EVERY MORNING)
  5. PRISTIQ EXTENDED-RELEASE [Suspect]
     Active Substance: DESVENLAFAXINE SUCCINATE
     Dosage: 75 MG, 1X/DAY, (25MG AND ONE 50MG PILL EACH DAY)

REACTIONS (7)
  - Cognitive disorder [Unknown]
  - Pain [Unknown]
  - Neurological symptom [Unknown]
  - Intentional product misuse [Unknown]
  - Drug ineffective [Unknown]
  - Memory impairment [Unknown]
  - Illness [Unknown]

NARRATIVE: CASE EVENT DATE: 20180101
